FAERS Safety Report 17506858 (Version 1)
Quarter: 2020Q1

REPORT INFORMATION
  Report Type: Spontaneous
  Country: CA (occurrence: CA)
  Receive Date: 20200306
  Receipt Date: 20200306
  Transmission Date: 20200409
  Serious: Yes (Other)
  Sender: FDA-Public Use
  Company Number: CA-TEVA-2020-CA-1194375

PATIENT
  Age: 43 Year
  Sex: Female

DRUGS (7)
  1. CLONAZEPAM. [Concomitant]
     Active Substance: CLONAZEPAM
  2. DILTIAZEM. [Concomitant]
     Active Substance: DILTIAZEM
  3. SPIRONOLACTONE. [Concomitant]
     Active Substance: SPIRONOLACTONE
  4. BUPROPION. [Concomitant]
     Active Substance: BUPROPION
  5. OLMESARTAN [Concomitant]
     Active Substance: OLMESARTAN
  6. VENLAFAXINE [Concomitant]
     Active Substance: VENLAFAXINE HYDROCHLORIDE
  7. FLUCONAZOLE. [Suspect]
     Active Substance: FLUCONAZOLE
     Indication: PRODUCT USED FOR UNKNOWN INDICATION
     Dosage: 50 MILLIGRAM DAILY;
     Route: 048

REACTIONS (7)
  - Product dispensing error [Unknown]
  - Peripheral swelling [Unknown]
  - Cardiac flutter [Unknown]
  - Blood pH decreased [Unknown]
  - Blood pressure abnormal [Unknown]
  - Drug dispensed to wrong patient [Unknown]
  - Malaise [Unknown]
